FAERS Safety Report 5148679-3 (Version None)
Quarter: 2006Q4

REPORT INFORMATION
  Report Type: 
  Country: None (occurrence: None)
  Receive Date: 20061103
  Receipt Date: 20061026
  Transmission Date: 20070319
  Serious: Yes (Other)
  Sender: FDA-Public Use
  Company Number: HQWYE638426OCT06

PATIENT
  Sex: Male

DRUGS (2)
  1. PANTOPRAZOLE SODIUM [Suspect]
     Indication: GASTROOESOPHAGEAL REFLUX DISEASE
     Dosage: 1 TABLET 1X PER 1 DAY; ^ABOUT A YEAR^
     Route: 048
     Dates: end: 20060801
  2. PANTOPRAZOLE SODIUM [Concomitant]
     Dosage: 1 TABLET 1X PER 2 DAY
     Route: 048

REACTIONS (10)
  - ABDOMINAL PAIN UPPER [None]
  - DIARRHOEA [None]
  - EXCORIATION [None]
  - FLATULENCE [None]
  - HEADACHE [None]
  - HEART RATE INCREASED [None]
  - HYPERHIDROSIS [None]
  - JAUNDICE [None]
  - LIVER DISORDER [None]
  - NAUSEA [None]
